FAERS Safety Report 7883889-3 (Version None)
Quarter: 2011Q4

REPORT INFORMATION
  Report Type: 
  Country: None (occurrence: None)
  Receive Date: 20111102
  Receipt Date: 20111026
  Transmission Date: 20120403
  Serious: Yes (Hospitalization)
  Sender: FDA-Public Use
  Company Number: FR-PFIZER INC-2011260382

PATIENT
  Age: 63 Year
  Sex: Female

DRUGS (2)
  1. COUMADIN [Interacting]
     Indication: CARDIAC VALVE DISEASE
     Dosage: 5 MG, 1X/DAY
     Route: 048
     Dates: start: 20010101, end: 20110521
  2. FLUCONAZOLE [Suspect]
     Dosage: UNK
     Route: 048
     Dates: start: 20110514, end: 20110521

REACTIONS (3)
  - DRUG INTERACTION [None]
  - INTERNATIONAL NORMALISED RATIO INCREASED [None]
  - GASTROINTESTINAL HAEMORRHAGE [None]
